FAERS Safety Report 24789005 (Version 1)
Quarter: 2024Q4

REPORT INFORMATION
  Report Type: Spontaneous
  Country: CN (occurrence: CN)
  Receive Date: 20241230
  Receipt Date: 20241230
  Transmission Date: 20250115
  Serious: Yes (Other)
  Sender: GE HEALTHCARE
  Company Number: CN-GE HEALTHCARE-2024CSU014810

PATIENT
  Age: 73 Year
  Sex: Female
  Weight: 68 kg

DRUGS (1)
  1. VISIPAQUE [Suspect]
     Active Substance: IODIXANOL
     Indication: Angiocardiogram
     Dosage: 110 ML, TOTAL
     Route: 013
     Dates: start: 20241211, end: 20241211

REACTIONS (2)
  - Hallucination, visual [Recovered/Resolved]
  - Vision blurred [Recovered/Resolved]

NARRATIVE: CASE EVENT DATE: 20241211
